FAERS Safety Report 6914274-6 (Version None)
Quarter: 2010Q3

REPORT INFORMATION
  Report Type: 
  Country: None (occurrence: None)
  Receive Date: 20100809
  Receipt Date: 20100729
  Transmission Date: 20110219
  Serious: Yes (Hospitalization)
  Sender: FDA-Public Use
  Company Number: B0647866A

PATIENT
  Sex: Male

DRUGS (4)
  1. PAROXETINE HCL [Suspect]
     Dosage: 65MG UNKNOWN
     Route: 065
  2. SERETIDE [Concomitant]
     Indication: ASTHMA
     Route: 055
  3. BRICANYL [Concomitant]
     Indication: ASTHMA
     Route: 055
  4. RISPERIDONE [Concomitant]

REACTIONS (14)
  - ACTIVITIES OF DAILY LIVING IMPAIRED [None]
  - ANXIETY [None]
  - BEDRIDDEN [None]
  - DEPRESSION [None]
  - DRUG DEPENDENCE [None]
  - HEADACHE [None]
  - INSOMNIA [None]
  - MALAISE [None]
  - MENTAL DISORDER [None]
  - SOMNOLENCE [None]
  - STRESS [None]
  - SUICIDAL IDEATION [None]
  - TREMOR [None]
  - WITHDRAWAL SYNDROME [None]
